FAERS Safety Report 4452136-7 (Version None)
Quarter: 2004Q3

REPORT INFORMATION
  Report Type: 
  Country: None (occurrence: None)
  Receive Date: 20040913
  Receipt Date: 20040719
  Transmission Date: 20050211
  Serious: No
  Sender: FDA-Public Use
  Company Number: 2004-BP-05797BP

PATIENT
  Age: 69 Year
  Sex: Male

DRUGS (3)
  1. SPIRIVA [Suspect]
     Indication: CHRONIC OBSTRUCTIVE AIRWAYS DISEASE
     Dosage: 18 MCG (18 MCG, 1 IN 1 D), IH
     Route: 055
     Dates: end: 20040717
  2. SEREVENT [Suspect]
     Indication: CHRONIC OBSTRUCTIVE AIRWAYS DISEASE
  3. PREDNISONE [Concomitant]

REACTIONS (7)
  - ASTHENIA [None]
  - DYSGEUSIA [None]
  - DYSPNOEA [None]
  - ERUCTATION [None]
  - FLATULENCE [None]
  - INFLUENZA LIKE ILLNESS [None]
  - NAUSEA [None]
